FAERS Safety Report 12369096 (Version 1)
Quarter: 2016Q2

REPORT INFORMATION
  Report Type: Report from Study
  Country: BR (occurrence: BR)
  Receive Date: 20160513
  Receipt Date: 20160513
  Transmission Date: 20160815
  Serious: Yes (Hospitalization, Other)
  Sender: FDA-Public Use
  Company Number: BR-ABBVIE-15K-020-1466216-00

PATIENT
  Sex: Female
  Weight: 51 kg

DRUGS (2)
  1. HUMIRA [Suspect]
     Active Substance: ADALIMUMAB
     Indication: CROHN^S DISEASE
     Dosage: UNSPECIFIED LOADING DOSE
     Route: 058
     Dates: start: 20150514, end: 20150514
  2. HUMIRA [Suspect]
     Active Substance: ADALIMUMAB
     Route: 058
     Dates: start: 2015, end: 20150625

REACTIONS (14)
  - Weight decreased [Recovered/Resolved]
  - Blood calcium decreased [Unknown]
  - Alopecia [Unknown]
  - Dehydration [Unknown]
  - Post procedural complication [Recovered/Resolved]
  - Fall [Recovered/Resolved]
  - Asthenia [Recovered/Resolved]
  - Drug ineffective [Not Recovered/Not Resolved]
  - Post procedural diarrhoea [Recovered/Resolved]
  - Hypovitaminosis [Recovered/Resolved]
  - Malabsorption [Recovered/Resolved]
  - Femur fracture [Recovered/Resolved]
  - Crohn^s disease [Unknown]
  - Colon cancer [Recovered/Resolved]

NARRATIVE: CASE EVENT DATE: 2015
